FAERS Safety Report 4317619-9 (Version None)
Quarter: 2004Q1

REPORT INFORMATION
  Report Type: 
  Country: None (occurrence: None)
  Receive Date: 20040315
  Receipt Date: 20040212
  Transmission Date: 20041129
  Serious: Yes (Hospitalization)
  Sender: FDA-Public Use
  Company Number: 200410685JP

PATIENT
  Age: 61 Year
  Sex: Male

DRUGS (6)
  1. LANTUS [Suspect]
     Indication: DIABETES MELLITUS
     Route: 058
     Dates: start: 20031216, end: 20040211
  2. DIOVAN [Suspect]
     Indication: HYPERTENSION
     Dates: start: 20031216
  3. HARNAL [Suspect]
     Indication: BENIGN PROSTATIC HYPERPLASIA
     Dates: start: 20031216
  4. AMLODIN [Suspect]
     Indication: HYPERTENSION
     Dates: start: 20040115
  5. METHYCOOL [Concomitant]
     Indication: NEUROPATHY PERIPHERAL
     Route: 048
     Dates: start: 20030712
  6. PURSENNID [Concomitant]
     Indication: CONSTIPATION
     Route: 048
     Dates: start: 20030712

REACTIONS (6)
  - ALANINE AMINOTRANSFERASE INCREASED [None]
  - ASPARTATE AMINOTRANSFERASE INCREASED [None]
  - BLOOD ALKALINE PHOSPHATASE INCREASED [None]
  - BLOOD BILIRUBIN INCREASED [None]
  - BLOOD LACTATE DEHYDROGENASE DECREASED [None]
  - GAMMA-GLUTAMYLTRANSFERASE INCREASED [None]
